FAERS Safety Report 8820584 (Version 1)
Quarter: 2012Q4

REPORT INFORMATION
  Report Type: 
  Country: FR (occurrence: FR)
  Receive Date: 20121002
  Receipt Date: 20121002
  Transmission Date: 20130627
  Serious: Yes (Hospitalization)
  Sender: FDA-Public Use
  Company Number: FR-PFIZER INC-2012238437

PATIENT
  Age: 74 Year
  Sex: Male

DRUGS (8)
  1. ALDACTONE [Suspect]
     Dosage: 75 mg, 1x/day
     Route: 048
     Dates: start: 201207, end: 20120822
  2. TRIATEC [Suspect]
     Dosage: UNK
     Route: 048
     Dates: start: 201207, end: 20120828
  3. DIFFU K [Suspect]
     Dosage: 1 DF, 3x/day
     Route: 048
     Dates: start: 201207, end: 201208
  4. LASILIX [Concomitant]
     Dosage: 250 mg, 1x/day
     Route: 048
  5. LERCAN [Concomitant]
     Dosage: 20 mg, 1x/day
     Route: 048
  6. PRAVASTATIN SODIUM [Concomitant]
     Dosage: 10 mg, 1x/day
     Route: 048
  7. PREVISCAN [Concomitant]
     Indication: ATRIAL FIBRILLATION
     Dosage: 25 mg, 1x/day
     Route: 048
  8. ALLOPURINOL [Concomitant]
     Dosage: 300 mg, 1x/day
     Route: 048

REACTIONS (3)
  - Renal failure [Recovered/Resolved]
  - Hyperkalaemia [Recovered/Resolved]
  - Electrocardiogram abnormal [Recovered/Resolved]
